FAERS Safety Report 6070296-1 (Version None)
Quarter: 2009Q1

REPORT INFORMATION
  Report Type: 
  Country: None (occurrence: None)
  Receive Date: 20090209
  Receipt Date: 20090109
  Transmission Date: 20090719
  Serious: Yes (Hospitalization)
  Sender: FDA-Public Use
  Company Number: EC-PFIZER INC-2007026971

PATIENT

DRUGS (5)
  1. SUNITINIB MALATE [Suspect]
     Indication: RENAL CANCER METASTATIC
     Dosage: 50 MG, 1X/DAY
     Route: 048
     Dates: start: 20060916, end: 20070329
  2. DEXTROSE [Concomitant]
  3. CEFTRIAXONE [Concomitant]
  4. RANITIDINE [Concomitant]
  5. ATENOLOL [Concomitant]

REACTIONS (1)
  - PERICARDIAL EFFUSION [None]
